FAERS Safety Report 5084863-5 (Version None)
Quarter: 2006Q3

REPORT INFORMATION
  Report Type: 
  Country: None (occurrence: None)
  Receive Date: 20060815
  Receipt Date: 20060731
  Transmission Date: 20061208
  Serious: Yes (Other)
  Sender: FDA-Public Use
  Company Number: US017045

PATIENT
  Age: 50 Year
  Sex: Male

DRUGS (4)
  1. TRISENOX [Suspect]
     Indication: ACUTE PROMYELOCYTIC LEUKAEMIA
     Dosage: 11.692 MG QD INTRAVENOUS DRIP
     Route: 041
     Dates: start: 20060215, end: 20060228
  2. TRISENOX [Suspect]
     Indication: ACUTE PROMYELOCYTIC LEUKAEMIA
     Dosage: 5.456 MG QD INTRAVENOUS DRIP
     Route: 041
     Dates: start: 20060306, end: 20060308
  3. TRISENOX [Suspect]
     Indication: ACUTE PROMYELOCYTIC LEUKAEMIA
     Dosage: 11.692 MG QD INTRAVENOUS DRIP
     Route: 041
     Dates: start: 20060309, end: 20060322
  4. IDARUBICIN HCL [Concomitant]

REACTIONS (9)
  - ACUTE PROMYELOCYTIC LEUKAEMIA [None]
  - CONDITION AGGRAVATED [None]
  - HEADACHE [None]
  - LEUKAEMIC INFILTRATION BRAIN [None]
  - LEUKOCYTOSIS [None]
  - MYALGIA [None]
  - PROMYELOCYTE COUNT INCREASED [None]
  - PYREXIA [None]
  - SUBARACHNOID HAEMORRHAGE [None]
